FAERS Safety Report 8833394 (Version 8)
Quarter: 2012Q4

REPORT INFORMATION
  Report Type: 
  Country: US (occurrence: US)
  Receive Date: 20121010
  Receipt Date: 20121212
  Transmission Date: 20130627
  Serious: Yes (Hospitalization)
  Sender: FDA-Public Use
  Company Number: US-JNJFOC-20121003495

PATIENT
  Age: 70 Year
  Sex: Male
  Weight: 84.82 kg

DRUGS (3)
  1. XARELTO [Suspect]
     Indication: CEREBROVASCULAR ACCIDENT PROPHYLAXIS
     Route: 048
     Dates: start: 20120822, end: 20120925
  2. XARELTO [Suspect]
     Indication: ATRIAL FIBRILLATION
     Route: 048
     Dates: start: 20120822, end: 20120925
  3. WARFARIN [Concomitant]
     Route: 048
     Dates: start: 20120816, end: 20120822

REACTIONS (1)
  - Gastrointestinal haemorrhage [Recovered/Resolved]
